FAERS Safety Report 6634625-X (Version None)
Quarter: 2010Q1

REPORT INFORMATION
  Report Type: 
  Country: None (occurrence: None)
  Receive Date: 20100315
  Receipt Date: 20100308
  Transmission Date: 20100710
  Serious: Yes (Hospitalization)
  Sender: FDA-Public Use
  Company Number: A0849861A

PATIENT
  Age: 44 Year
  Sex: Female
  Weight: 69.5 kg

DRUGS (1)
  1. AVANDIA [Suspect]
     Dosage: 4MG PER DAY
     Route: 048
     Dates: end: 20090501

REACTIONS (3)
  - CARDIOMEGALY [None]
  - CEREBROVASCULAR ACCIDENT [None]
  - HEMIPARESIS [None]
